FAERS Safety Report 5312908-3 (Version None)
Quarter: 2007Q2

REPORT INFORMATION
  Report Type: 
  Country: None (occurrence: None)
  Receive Date: 20070430
  Receipt Date: 20070418
  Transmission Date: 20071010
  Serious: Yes (Other)
  Sender: FDA-Public Use
  Company Number: US-PFIZER INC-2006121803

PATIENT
  Sex: Female
  Weight: 94 kg

DRUGS (2)
  1. CELEBREX [Suspect]
     Indication: ARTHRITIS
     Route: 048
     Dates: start: 19990529, end: 19991111
  2. VIOXX [Suspect]

REACTIONS (1)
  - ISCHAEMIC STROKE [None]
